FAERS Safety Report 21920955 (Version 3)
Quarter: 2023Q1

REPORT INFORMATION
  Report Type: Report from Study
  Country: SG (occurrence: SG)
  Receive Date: 20230127
  Receipt Date: 20230214
  Transmission Date: 20230418
  Serious: Yes (Hospitalization)
  Sender: FDA-Public Use
  Company Number: SG-PFIZER INC-PV202200118054

PATIENT
  Age: 65 Year
  Sex: Female
  Weight: 66.1 kg

DRUGS (7)
  1. PALBOCICLIB [Suspect]
     Active Substance: PALBOCICLIB
     Indication: Breast cancer
     Dosage: DAILY
     Route: 048
     Dates: start: 20130106, end: 20190403
  2. PALBOCICLIB [Suspect]
     Active Substance: PALBOCICLIB
     Dosage: DAILY
     Route: 048
     Dates: start: 20190411, end: 20221205
  3. LETROZOLE [Suspect]
     Active Substance: LETROZOLE
     Indication: Breast cancer
     Dosage: 2.5 MG, DAILY
     Route: 048
     Dates: start: 20160106, end: 20221205
  4. LISINOPRIL [Concomitant]
     Active Substance: LISINOPRIL
     Indication: Hypertension
     Dosage: 10 MG, EVERY MORNING (OM)
     Route: 048
     Dates: start: 20220807, end: 20221203
  5. EMPAGLIFLOZIN [Concomitant]
     Active Substance: EMPAGLIFLOZIN
     Indication: Diabetes mellitus
     Dosage: 12.5 MG, EVERY MORNING (OM)
     Route: 048
     Dates: start: 20220405, end: 20221203
  6. METFORMIN [Concomitant]
     Active Substance: METFORMIN HYDROCHLORIDE
     Indication: Diabetes mellitus
     Dosage: 1 G, EVERY MORNING (OM)
     Route: 048
     Dates: start: 20220813, end: 20221203
  7. ATORVASTATIN [Concomitant]
     Active Substance: ATORVASTATIN
     Indication: Hyperlipidaemia
     Dosage: 10 MG, DAILY (OD)
     Route: 048
     Dates: start: 20181116

REACTIONS (5)
  - Myocardial infarction [Recovered/Resolved]
  - Electrocardiogram QT prolonged [Recovered/Resolved]
  - Escherichia bacteraemia [Recovered/Resolved]
  - Febrile neutropenia [Recovered/Resolved]
  - Pneumonia [Recovered/Resolved]

NARRATIVE: CASE EVENT DATE: 20221203
